FAERS Safety Report 8818724 (Version 2)
Quarter: 2014Q3

REPORT INFORMATION
  Report Type: Report from Study
  Country: US (occurrence: US)
  Receive Date: 20121001
  Receipt Date: 20140822
  Transmission Date: 20150326
  Serious: Yes (Other)
  Sender: FDA-Public Use
  Company Number: US-ROCHE-1129801

PATIENT
  Sex: Female

DRUGS (8)
  1. TAMOXIFEN [Concomitant]
     Active Substance: TAMOXIFEN
     Route: 065
  2. TYLENOL [Concomitant]
     Active Substance: ACETAMINOPHEN
  3. HERCEPTIN [Suspect]
     Active Substance: TRASTUZUMAB
     Dosage: MAINTENANCE DOSE
     Route: 042
  4. TAXOL [Concomitant]
     Active Substance: PACLITAXEL
  5. ATIVAN [Concomitant]
     Active Substance: LORAZEPAM
     Route: 065
  6. DARVOCET [Concomitant]
     Active Substance: ACETAMINOPHEN\PROPOXYPHENE HYDROCHLORIDE
  7. HERCEPTIN [Suspect]
     Active Substance: TRASTUZUMAB
     Indication: BREAST CANCER
     Dosage: LOADING DOSE
     Route: 042
  8. ARIMIDEX [Concomitant]
     Active Substance: ANASTROZOLE
     Route: 065

REACTIONS (12)
  - Decreased appetite [Unknown]
  - Asthenia [Unknown]
  - Cholelithiasis [Unknown]
  - Dysphonia [Unknown]
  - Cough [Unknown]
  - Neoplasm [Unknown]
  - Insomnia [Unknown]
  - Malaise [Unknown]
  - Dyspnoea exertional [Unknown]
  - Fatigue [Unknown]
  - Back pain [Unknown]
  - Chest discomfort [Unknown]
